FAERS Safety Report 5502053-6 (Version None)
Quarter: 2007Q4

REPORT INFORMATION
  Report Type: 
  Country: None (occurrence: None)
  Receive Date: 20071030
  Receipt Date: 20070504
  Transmission Date: 20080405
  Serious: No
  Sender: FDA-Public Use
  Company Number: A0650145A

PATIENT
  Sex: Male

DRUGS (1)
  1. IMITREX [Suspect]
     Indication: CLUSTER HEADACHE
     Route: 045

REACTIONS (1)
  - DRUG INEFFECTIVE [None]
